FAERS Safety Report 20153685 (Version 1)
Quarter: 2021Q4

REPORT INFORMATION
  Report Type: Spontaneous
  Country: US (occurrence: US)
  Receive Date: 20211207
  Receipt Date: 20211207
  Transmission Date: 20220303
  Serious: Yes (Hospitalization)
  Sender: FDA-Public Use
  Company Number: US-STRIDES ARCOLAB LIMITED-2021SP030619

PATIENT
  Age: 57 Year
  Sex: Female

DRUGS (1)
  1. PREDNISOLONE [Suspect]
     Active Substance: PREDNISOLONE
     Indication: Hepatitis alcoholic
     Dosage: UNK
     Route: 065

REACTIONS (3)
  - Acute on chronic liver failure [Recovered/Resolved]
  - Bacillus infection [Recovered/Resolved]
  - Cytomegalovirus viraemia [Unknown]
